FAERS Safety Report 7374692-1 (Version None)
Quarter: 2011Q1

REPORT INFORMATION
  Report Type: 
  Country: None (occurrence: None)
  Receive Date: 20110325
  Receipt Date: 20100728
  Transmission Date: 20110831
  Serious: No
  Sender: FDA-Public Use
  Company Number: US-MYLANLABS-2010S1013761

PATIENT
  Age: 31 Year
  Sex: Female

DRUGS (2)
  1. ORTHO CYCLEN-28 [Concomitant]
  2. FENTANYL-100 [Suspect]
     Indication: PAIN
     Dosage: Q72H
     Route: 062
     Dates: start: 20100701, end: 20100727

REACTIONS (1)
  - APPLICATION SITE BURN [None]
